FAERS Safety Report 7293125-7 (Version None)
Quarter: 2011Q1

REPORT INFORMATION
  Report Type: 
  Country: None (occurrence: None)
  Receive Date: 20110215
  Receipt Date: 20110210
  Transmission Date: 20110831
  Serious: Yes (Hospitalization)
  Sender: FDA-Public Use
  Company Number: DE-ALLERGAN-1101763US

PATIENT
  Age: 62 Year
  Sex: Female

DRUGS (3)
  1. OZURDEX [Suspect]
     Indication: MACULAR OEDEMA
     Dosage: UNK
     Route: 031
     Dates: start: 20101215, end: 20101220
  2. GENTAMYTREX [Concomitant]
     Indication: ANTIBIOTIC PROPHYLAXIS
  3. OZURDEX [Suspect]
     Indication: RETINAL VEIN OCCLUSION

REACTIONS (1)
  - ENDOPHTHALMITIS [None]
